FAERS Safety Report 6711186-8 (Version None)
Quarter: 2010Q2

REPORT INFORMATION
  Report Type: 
  Country: None (occurrence: None)
  Receive Date: 20100504
  Receipt Date: 20100504
  Transmission Date: 20101027
  Serious: No
  Sender: FDA-Public Use
  Company Number: None

PATIENT
  Age: 46 Year
  Sex: Female
  Weight: 61.2356 kg

DRUGS (1)
  1. PROTONIX [Suspect]
     Indication: GASTROOESOPHAGEAL REFLUX DISEASE
     Dosage: 40MG QD PO
     Route: 048

REACTIONS (5)
  - ACCIDENTAL OVERDOSE [None]
  - ANXIETY [None]
  - DIZZINESS [None]
  - MEDICATION ERROR [None]
  - VERTIGO [None]
